FAERS Safety Report 4605523-8 (Version None)
Quarter: 2005Q1

REPORT INFORMATION
  Report Type: 
  Country: None (occurrence: None)
  Receive Date: 20050310
  Receipt Date: 20040830
  Transmission Date: 20050727
  Serious: No
  Sender: FDA-Public Use
  Company Number: US-BRISTOL-MYERS SQUIBB COMPANY-12690376

PATIENT
  Age: 31 Year
  Sex: Female
  Weight: 57 kg

DRUGS (5)
  1. VAGISTAT-1 [Suspect]
     Indication: GENITAL PRURITUS FEMALE
     Route: 067
     Dates: start: 20040829, end: 20040829
  2. VAGIGARD [Suspect]
     Route: 061
     Dates: start: 20040829, end: 20040829
  3. TRAZODONE HCL [Concomitant]
  4. WELLBUTRIN [Concomitant]
  5. STRATTERA [Concomitant]

REACTIONS (2)
  - VULVAL OEDEMA [None]
  - VULVOVAGINAL DISCOMFORT [None]
